FAERS Safety Report 5584466-X (Version None)
Quarter: 2008Q1

REPORT INFORMATION
  Report Type: 
  Country: None (occurrence: None)
  Receive Date: 20080108
  Receipt Date: 20071226
  Transmission Date: 20080703
  Serious: No
  Sender: FDA-Public Use
  Company Number: US-ELI_LILLY_AND_COMPANY-US200712003672

PATIENT
  Sex: Female

DRUGS (2)
  1. FORTEO [Suspect]
  2. BONIVA [Concomitant]

REACTIONS (1)
  - NO ADVERSE EVENT [None]
